FAERS Safety Report 7399759 (Version 2)
Quarter: 2014Q2

REPORT INFORMATION
  Report Type: Spontaneous
  Country: None (occurrence: None)
  Receive Date: 20100520
  Receipt Date: 20140416
  Transmission Date: 20141212
  Serious: Yes (Other)
  Sender: FDA-Public Use
  Company Number: 09-AUR-09498

PATIENT
  Sex: Female

DRUGS (3)
  1. SEROXAT [Suspect]
     Indication: DEPRESSION
     Dates: start: 19980403, end: 200703
  2. CIPRAMIL [Concomitant]
  3. SERTRALINE HYDROCHLORIDE [Concomitant]

REACTIONS (27)
  - Tearfulness [None]
  - Depressed mood [None]
  - Irritability [None]
  - Fear [None]
  - Suicidal ideation [None]
  - Drug withdrawal syndrome [None]
  - Dizziness [None]
  - Vertigo [None]
  - Panic attack [None]
  - Mood swings [None]
  - Negative thoughts [None]
  - Anger [None]
  - Fatigue [None]
  - Apathy [None]
  - Decreased interest [None]
  - Confusional state [None]
  - Paraesthesia [None]
  - Lethargy [None]
  - Memory impairment [None]
  - Disturbance in attention [None]
  - Hyperhidrosis [None]
  - Tremor [None]
  - Paranoia [None]
  - Visual impairment [None]
  - Sexual dysfunction [None]
  - Huntington^s disease [None]
  - Agitation [None]
